FAERS Safety Report 7509095-X (Version None)
Quarter: 2011Q2

REPORT INFORMATION
  Report Type: 
  Country: None (occurrence: None)
  Receive Date: 20110527
  Receipt Date: 20110525
  Transmission Date: 20111010
  Serious: Yes (Life-Threatening, Hospitalization, Other)
  Sender: FDA-Public Use
  Company Number: TR-PFIZER INC-2011111715

PATIENT
  Age: 16 Year
  Sex: Female

DRUGS (1)
  1. AMLODIPINE BESYLATE [Suspect]
     Dosage: 50 DF, SINGLE (500 MG TOTAL)
     Route: 048

REACTIONS (5)
  - INTENTIONAL OVERDOSE [None]
  - PULMONARY OEDEMA [None]
  - RESPIRATORY ARREST [None]
  - SUICIDE ATTEMPT [None]
  - SHOCK [None]
